FAERS Safety Report 6219972-8 (Version None)
Quarter: 2009Q2

REPORT INFORMATION
  Report Type: 
  Country: None (occurrence: None)
  Receive Date: 20090605
  Receipt Date: 20090601
  Transmission Date: 20091009
  Serious: Yes (Death, Life-Threatening)
  Sender: FDA-Public Use
  Company Number: 2009SP008701

PATIENT
  Age: 29 Year
  Sex: Female
  Weight: 63 kg

DRUGS (6)
  1. POSACONAZOLE [Suspect]
     Indication: FUNGAL INFECTION
     Dosage: 10 ML BID PO
     Route: 048
     Dates: start: 20090418, end: 20090418
  2. CYCLOSPORINE [Concomitant]
  3. PREDNISONE [Concomitant]
  4. CEFOPERAZONE SODIUM [Concomitant]
  5. SULBACTAM [Concomitant]
  6. VANCOMYCIN HCL [Concomitant]

REACTIONS (6)
  - ACUTE PULMONARY OEDEMA [None]
  - ASPERGILLOSIS [None]
  - BLOOD PH DECREASED [None]
  - PCO2 DECREASED [None]
  - PULMONARY MASS [None]
  - RESPIRATORY FAILURE [None]
